FAERS Safety Report 6033394-4 (Version None)
Quarter: 2009Q1

REPORT INFORMATION
  Report Type: 
  Country: None (occurrence: None)
  Receive Date: 20090109
  Receipt Date: 20081211
  Transmission Date: 20090719
  Serious: Yes (Death, Disabling, Other)
  Sender: FDA-Public Use
  Company Number: US-BAYER-US-2007-013217

PATIENT
  Age: 73 Year
  Sex: Male
  Weight: 86 kg

DRUGS (37)
  1. MAGNEVIST [Suspect]
     Indication: ANGIOGRAM
     Dosage: TOTAL DAILY DOSE: 40 ML  UNIT DOSE: 40 ML
     Route: 042
     Dates: start: 20030604, end: 20030604
  2. MAGNEVIST [Suspect]
     Dosage: TOTAL DAILY DOSE: 40 ML  UNIT DOSE: 40 ML
     Route: 042
     Dates: start: 20041005, end: 20041005
  3. MAGNEVIST [Suspect]
     Dosage: TOTAL DAILY DOSE: 40 ML  UNIT DOSE: 40 ML
     Route: 042
     Dates: start: 20050303, end: 20050303
  4. MAGNEVIST [Suspect]
     Dosage: TOTAL DAILY DOSE: 20 ML  UNIT DOSE: 20 ML
     Route: 042
     Dates: start: 20050303, end: 20050303
  5. OMNISCAN [Suspect]
     Indication: ANGIOGRAM
  6. OPTIMARK [Suspect]
     Indication: ANGIOGRAM
  7. MULTIHANCE [Suspect]
     Indication: ANGIOGRAM
  8. PROHANCE [Suspect]
     Indication: ANGIOGRAM
  9. SYNTHROID [Concomitant]
     Indication: HYPOTHYROIDISM
     Route: 048
  10. ALLOPURINOL [Concomitant]
     Indication: GOUT
  11. CAPTOPRIL [Concomitant]
  12. NSAID'S [Concomitant]
  13. VISIPAQUE /USA/ [Concomitant]
     Indication: CATHETERISATION CARDIAC
     Route: 042
     Dates: start: 20050103
  14. LASIX [Concomitant]
  15. TOPROL-XL [Concomitant]
  16. DOXAZOSIN MESYLATE [Concomitant]
  17. LIPITOR [Concomitant]
  18. ARANESP [Concomitant]
     Route: 042
     Dates: start: 20050308
  19. ARANESP [Concomitant]
  20. ARANESP [Concomitant]
     Route: 058
  21. PLAVIX [Concomitant]
  22. BECONASE [Concomitant]
  23. COLACE [Concomitant]
  24. ATROVENT [Concomitant]
  25. ADVAIR DISKUS 100/50 [Concomitant]
  26. AMBIEN [Concomitant]
  27. CARDURA /IRE/ [Concomitant]
  28. MECLIZINE [Concomitant]
  29. ROXICET [Concomitant]
  30. SENNA [Concomitant]
  31. LISINOPRIL [Concomitant]
     Route: 048
  32. LISINOPRIL [Concomitant]
     Route: 048
  33. LABETALOL HYDROCHLORIDE [Concomitant]
     Route: 048
  34. NEPHROCAPS [Concomitant]
  35. THALIDOMIDE [Concomitant]
  36. SINGULAIR [Concomitant]
  37. SPIRIVA [Concomitant]

REACTIONS (28)
  - ABASIA [None]
  - ANHEDONIA [None]
  - ANXIETY [None]
  - DEFORMITY [None]
  - DEPRESSION [None]
  - EMOTIONAL DISTRESS [None]
  - ERYTHEMA [None]
  - FATIGUE [None]
  - FIBROSIS [None]
  - GENERAL PHYSICAL HEALTH DETERIORATION [None]
  - JOINT CONTRACTURE [None]
  - JOINT RANGE OF MOTION DECREASED [None]
  - LIVEDO RETICULARIS [None]
  - MENTAL DISORDER [None]
  - MOBILITY DECREASED [None]
  - MUSCLE CONTRACTURE [None]
  - MUSCULOSKELETAL STIFFNESS [None]
  - NEPHROGENIC SYSTEMIC FIBROSIS [None]
  - OEDEMA PERIPHERAL [None]
  - PAIN [None]
  - PAIN IN EXTREMITY [None]
  - PRURITUS [None]
  - SKIN DISORDER [None]
  - SKIN FIBROSIS [None]
  - SKIN HYPERTROPHY [None]
  - SKIN TIGHTNESS [None]
  - STRESS [None]
  - SWELLING [None]
